FAERS Safety Report 14896320 (Version 1)
Quarter: 2018Q2

REPORT INFORMATION
  Report Type: Spontaneous
  Country: US (occurrence: US)
  Receive Date: 20180426
  Receipt Date: 20180426
  Transmission Date: 20180711
  Serious: Yes (Other)
  Sender: FDA-Public Use
  Company Number: None

PATIENT
  Age: 38 Year
  Sex: Male
  Weight: 117.93 kg

DRUGS (1)
  1. COSENTYX [Suspect]
     Active Substance: SECUKINUMAB
     Indication: ANKYLOSING SPONDYLITIS
     Dosage: 1 PEN EVERY 28 DAYS UNDER THE SKIN
     Route: 058
     Dates: start: 20180314

REACTIONS (4)
  - Dizziness [None]
  - Myalgia [None]
  - Fatigue [None]
  - Irritable bowel syndrome [None]

NARRATIVE: CASE EVENT DATE: 20180424
